FAERS Safety Report 19064359 (Version 1)
Quarter: 2021Q1

REPORT INFORMATION
  Report Type: Spontaneous
  Country: CA (occurrence: CA)
  Receive Date: 20210326
  Receipt Date: 20210326
  Transmission Date: 20210420
  Serious: Yes (Hospitalization, Disabling, Other)
  Sender: FDA-Public Use
  Company Number: CA-PURDUE-USA-2020-0201656

PATIENT

DRUGS (1)
  1. OXYCONTIN [Suspect]
     Active Substance: OXYCODONE HYDROCHLORIDE
     Indication: PAIN
     Dosage: UNK
     Route: 048

REACTIONS (17)
  - Amnesia [Unknown]
  - Cellulitis [Unknown]
  - Emotional distress [Unknown]
  - Unevaluable event [Unknown]
  - Hypoaesthesia [Unknown]
  - Drug tolerance [Unknown]
  - Cardiac arrest [Unknown]
  - Illness [Unknown]
  - Bone pain [Unknown]
  - Speech disorder [Unknown]
  - Fear [Unknown]
  - Pneumonia [Unknown]
  - Respiratory failure [Unknown]
  - Disability [Unknown]
  - Drug withdrawal syndrome [Unknown]
  - Overdose [Unknown]
  - Tooth loss [Unknown]
